FAERS Safety Report 11855350 (Version 2)
Quarter: 2016Q1

REPORT INFORMATION
  Report Type: Spontaneous
  Country: TR (occurrence: TR)
  Receive Date: 20151221
  Receipt Date: 20160308
  Transmission Date: 20160526
  Serious: Yes (Hospitalization, Other)
  Sender: FDA-Public Use
  Company Number: TR-ASTELLAS-2015US047114

PATIENT
  Age: 64 Year
  Sex: Female

DRUGS (2)
  1. TACROLIMUS. [Suspect]
     Active Substance: TACROLIMUS
     Indication: LIVER TRANSPLANT
     Dosage: UNK UNK, UNKNOWN FREQ.
     Route: 065
  2. CYCLOSPORINE. [Suspect]
     Active Substance: CYCLOSPORINE
     Indication: LIVER TRANSPLANT
     Dosage: UNK UNK, UNKNOWN FREQ.
     Route: 065

REACTIONS (5)
  - Delirium [Recovered/Resolved]
  - Seizure [Recovered/Resolved]
  - Off label use [Unknown]
  - Dysarthria [Recovered/Resolved]
  - Tremor [Recovered/Resolved]
